FAERS Safety Report 19160612 (Version 2)
Quarter: 2021Q2

REPORT INFORMATION
  Report Type: Spontaneous
  Country: SE (occurrence: SE)
  Receive Date: 20210420
  Receipt Date: 20210505
  Transmission Date: 20210717
  Serious: Yes (Death)
  Sender: FDA-Public Use
  Company Number: SE-GILEAD-2021-0526123

PATIENT
  Age: 61 Year
  Sex: Female
  Weight: 75 kg

DRUGS (21)
  1. VEKLURY [Suspect]
     Active Substance: REMDESIVIR
     Dosage: 100 MG, QD
     Route: 042
     Dates: start: 202104, end: 202104
  2. FURIX [CEFUROXIME] [Concomitant]
     Active Substance: CEFUROXIME
  3. VITALIPID ADULT [Concomitant]
     Active Substance: ERGOCALCIFEROL\PHYTONADIONE\RETINOL\TOCOPHEROL
  4. FELODIPIN [Concomitant]
     Active Substance: FELODIPINE
  5. NATRIUMKLORID FRESENIUS KABI [Concomitant]
  6. GLUKOS BRAUN [Concomitant]
  7. FRAGMIN [Concomitant]
     Active Substance: DALTEPARIN SODIUM
     Dosage: UNK
     Dates: start: 202104, end: 202104
  8. SMOFKABIVEN PERIFER [Concomitant]
  9. ROSUVASTATIN ACCORD [Concomitant]
     Active Substance: ROSUVASTATIN
  10. PREDNISOLON [PREDNISONE] [Concomitant]
     Active Substance: PREDNISONE
  11. DEXAMETASON ABCUR [Concomitant]
  12. SOLUVIT PULVER [Concomitant]
     Dosage: UNK
     Dates: start: 202104
  13. VEKLURY [Suspect]
     Active Substance: REMDESIVIR
     Indication: COVID-19
     Dosage: 200 MG, ONCE
     Route: 042
     Dates: start: 202104, end: 202104
  14. SANDIMMUN NEORAL [Concomitant]
     Active Substance: CYCLOSPORINE
  15. NOVORAPID [Concomitant]
     Active Substance: INSULIN ASPART
  16. METOPROLOL SANDOZ [METOPROLOL SUCCINATE] [Concomitant]
     Active Substance: METOPROLOL SUCCINATE
  17. NYSTIMEX [Concomitant]
     Active Substance: NYSTATIN
  18. ESOMEPRAZOL KRKA [Concomitant]
  19. RINGER?ACETAT BAXTER VIAFLO [Concomitant]
     Dosage: UNK
     Dates: start: 202104
  20. INSULATARD [INSULIN HUMAN INJECTION, ISOPHANE] [Concomitant]
     Active Substance: INSULIN HUMAN
  21. EZETIMIB KRKA [Concomitant]

REACTIONS (1)
  - Haemorrhage [Fatal]

NARRATIVE: CASE EVENT DATE: 202104
